FAERS Safety Report 20612535 (Version 1)
Quarter: 2022Q1

REPORT INFORMATION
  Report Type: Spontaneous
  Country: US (occurrence: US)
  Receive Date: 20220318
  Receipt Date: 20220318
  Transmission Date: 20220423
  Serious: No
  Sender: FDA-Public Use
  Company Number: US-TEVA-2022-US-2010864

PATIENT
  Age: 84 Year
  Sex: Female

DRUGS (1)
  1. CLONIDINE [Suspect]
     Active Substance: CLONIDINE
     Route: 065

REACTIONS (5)
  - Hypersensitivity [Unknown]
  - Feeling hot [Unknown]
  - Headache [Unknown]
  - Hypertension [Unknown]
  - Tremor [Unknown]
